FAERS Safety Report 23712655 (Version 1)
Quarter: 2024Q2

REPORT INFORMATION
  Report Type: Spontaneous
  Country: RU (occurrence: RU)
  Receive Date: 20240405
  Receipt Date: 20240405
  Transmission Date: 20240716
  Serious: Yes (Hospitalization)
  Sender: FDA-Public Use
  Company Number: RU-SANDOZ-SDZ2024RU036141

PATIENT
  Sex: Female

DRUGS (5)
  1. AMOXICILLIN\CLAVULANATE POTASSIUM [Suspect]
     Active Substance: AMOXICILLIN\CLAVULANATE POTASSIUM
     Indication: Suicide attempt
     Dosage: 1 BLISTER PEROS
     Route: 048
     Dates: start: 20240403, end: 20240403
  2. CITRAMON P [Suspect]
     Active Substance: ACETAMINOPHEN\ASPIRIN\CAFFEINE
     Indication: Suicide attempt
     Dosage: 1 BLISTER PEROS
     Route: 048
     Dates: start: 20240403, end: 20240403
  3. DROTAVERINE [Suspect]
     Active Substance: DROTAVERINE
     Indication: Suicide attempt
     Dosage: 15 TABLETS PEROS
     Route: 048
     Dates: start: 20240403, end: 20240403
  4. KETOROLAC TROMETHAMINE [Suspect]
     Active Substance: KETOROLAC TROMETHAMINE
     Indication: Suicide attempt
     Dosage: 1 BLISTER PEROS
     Route: 048
     Dates: start: 20240403, end: 20240403
  5. ACETAMINOPHEN [Suspect]
     Active Substance: ACETAMINOPHEN
     Indication: Suicide attempt
     Dosage: 1 BLISTER PEROS
     Route: 048
     Dates: start: 20240403, end: 20240403

REACTIONS (1)
  - Suicide attempt [Unknown]

NARRATIVE: CASE EVENT DATE: 20240403
